FAERS Safety Report 6735407-0 (Version None)
Quarter: 2010Q2

REPORT INFORMATION
  Report Type: 
  Country: None (occurrence: None)
  Receive Date: 20100521
  Receipt Date: 20100510
  Transmission Date: 20101027
  Serious: Yes (Other)
  Sender: FDA-Public Use
  Company Number: PHEH2006US15240

PATIENT
  Sex: Female

DRUGS (2)
  1. ZOMETA [Suspect]
     Dosage: UNK
     Dates: start: 20020101
  2. COUMADIN [Concomitant]

REACTIONS (14)
  - ABSCESS [None]
  - ANXIETY [None]
  - CHOLELITHIASIS [None]
  - DECREASED INTEREST [None]
  - GENERAL PHYSICAL HEALTH DETERIORATION [None]
  - LYMPHADENOPATHY MEDIASTINAL [None]
  - MALIGNANT MELANOMA [None]
  - MALIGNANT PLEURAL EFFUSION [None]
  - METASTASES TO BONE [None]
  - METASTASES TO LIVER [None]
  - OSTEONECROSIS OF JAW [None]
  - PAIN [None]
  - RENAL CYST [None]
  - SKIN NEOPLASM EXCISION [None]
